FAERS Safety Report 6432617-7 (Version None)
Quarter: 2009Q4

REPORT INFORMATION
  Report Type: 
  Country: None (occurrence: None)
  Receive Date: 20091109
  Receipt Date: 20091028
  Transmission Date: 20100525
  Serious: No
  Sender: FDA-Public Use
  Company Number: US-B.I. PHARMACEUTICALS,INC./RIDGEFIELD-2009-BP-11774BP

PATIENT
  Sex: Female

DRUGS (5)
  1. ZANTAC 150 [Suspect]
     Indication: GASTROOESOPHAGEAL REFLUX DISEASE
     Dosage: 150 MG
     Route: 048
     Dates: start: 20081001, end: 20081001
  2. ZANTAC 150 [Suspect]
     Indication: DYSPEPSIA
     Dosage: 150 MG
     Route: 048
     Dates: start: 19990101, end: 19990101
  3. ALBUTEROL [Concomitant]
     Indication: ASTHMA
     Route: 055
     Dates: start: 19990101
  4. NASACORT [Concomitant]
     Indication: ASTHMA
     Dates: start: 19990101
  5. PREDNISONE [Concomitant]
     Indication: ASTHMA
     Dates: start: 19990101

REACTIONS (4)
  - ABDOMINAL PAIN UPPER [None]
  - COUGH [None]
  - FOREIGN BODY [None]
  - ORAL DISORDER [None]
